FAERS Safety Report 23845812 (Version 1)
Quarter: 2024Q2

REPORT INFORMATION
  Report Type: Other
  Country: CA (occurrence: CA)
  Receive Date: 20240512
  Receipt Date: 20240512
  Transmission Date: 20240716
  Serious: Yes (Other)
  Sender: FDA-Public Use
  Company Number: CA-BIOCON BIOLOGICS LIMITED-BBL2024003141

PATIENT

DRUGS (6)
  1. TRASTUZUMAB [Suspect]
     Active Substance: TRASTUZUMAB
     Indication: Gastrooesophageal cancer
     Dosage: 6 MILLIGRAM
     Route: 065
  2. TRASTUZUMAB [Suspect]
     Active Substance: TRASTUZUMAB
     Dosage: 4 MILLIGRAM
     Route: 065
  3. RAMUCIRUMAB [Suspect]
     Active Substance: RAMUCIRUMAB
     Indication: Gastrooesophageal cancer
     Dosage: 8 MILLIGRAM, QD
     Route: 065
  4. PACLITAXEL [Suspect]
     Active Substance: PACLITAXEL
     Indication: Gastrooesophageal cancer
     Dosage: 80 MILLIGRAM
     Route: 065
  5. PACLITAXEL [Suspect]
     Active Substance: PACLITAXEL
     Indication: Gastrooesophageal cancer
     Dosage: 60 MILLIGRAM, LIQUID INTRAVENOUS
     Route: 042
  6. TUCATINIB [Suspect]
     Active Substance: TUCATINIB
     Indication: Gastrooesophageal cancer
     Dosage: 300 MILLIGRAM, BID
     Route: 065

REACTIONS (11)
  - Peripheral sensory neuropathy [Unknown]
  - Neutropenia [Unknown]
  - Fatigue [Unknown]
  - Diarrhoea [Unknown]
  - Nausea [Unknown]
  - Epistaxis [Unknown]
  - Mucosal inflammation [Unknown]
  - Stomatitis [Unknown]
  - Weight decreased [Unknown]
  - Pyrexia [Unknown]
  - Constipation [Unknown]
